FAERS Safety Report 7779743-8 (Version None)
Quarter: 2011Q3

REPORT INFORMATION
  Report Type: 
  Country: None (occurrence: None)
  Receive Date: 20110927
  Receipt Date: 20110622
  Transmission Date: 20111222
  Serious: No
  Sender: FDA-Public Use
  Company Number: US-ASTRAZENECA-2010SE16011

PATIENT
  Age: 64 Year
  Sex: Female
  Weight: 83 kg

DRUGS (17)
  1. SEROQUEL [Suspect]
     Route: 048
  2. SEROQUEL [Suspect]
     Route: 048
  3. SEROQUEL [Suspect]
     Route: 048
  4. PHENOBARBITAL TAB [Concomitant]
     Indication: CONVULSION
  5. SEROQUEL [Suspect]
     Route: 048
  6. SEROQUEL [Suspect]
     Indication: HALLUCINATION, AUDITORY
     Route: 048
     Dates: start: 20000101
  7. SEROQUEL [Suspect]
     Route: 048
  8. SEROQUEL [Suspect]
     Indication: SUICIDAL IDEATION
     Route: 048
     Dates: start: 20000101
  9. VISTERAL [Concomitant]
     Indication: ANXIETY
  10. SEROQUEL [Suspect]
     Indication: BIPOLAR DISORDER
     Route: 048
     Dates: start: 20000101
  11. GLYBURIDE [Concomitant]
     Indication: DIABETES MELLITUS
  12. SEROQUEL [Suspect]
     Route: 048
  13. FOLIC ACID [Concomitant]
  14. ZOLOFT [Concomitant]
  15. DILANTIN [Concomitant]
     Indication: CONVULSION
  16. TOMAZEPAM [Concomitant]
  17. LOVASTATIN [Concomitant]
     Indication: BLOOD CHOLESTEROL INCREASED

REACTIONS (6)
  - DRUG DOSE OMISSION [None]
  - TACHYPHRENIA [None]
  - HALLUCINATION, AUDITORY [None]
  - INSOMNIA [None]
  - INCORRECT DOSE ADMINISTERED [None]
  - WRONG TECHNIQUE IN DRUG USAGE PROCESS [None]
